APPROVED DRUG PRODUCT: CALCIUM ACETATE
Active Ingredient: CALCIUM ACETATE
Strength: 667MG
Dosage Form/Route: CAPSULE;ORAL
Application: A203298 | Product #001
Applicant: LOTUS PHARMACEUTICAL CO LTD NANTOU PLANT
Approved: Jul 26, 2016 | RLD: No | RS: No | Type: DISCN